FAERS Safety Report 21343633 (Version 6)
Quarter: 2025Q2

REPORT INFORMATION
  Report Type: Spontaneous
  Country: US (occurrence: US)
  Receive Date: 20220916
  Receipt Date: 20250623
  Transmission Date: 20250717
  Serious: Yes (Other)
  Sender: PFIZER
  Company Number: US-PFIZER INC-PV202200065222

PATIENT
  Age: 58 Year
  Sex: Male

DRUGS (1)
  1. INLYTA [Suspect]
     Active Substance: AXITINIB
     Dates: start: 20220911

REACTIONS (12)
  - Blood pressure increased [Recovering/Resolving]
  - Decreased appetite [Unknown]
  - Abdominal pain upper [Not Recovered/Not Resolved]
  - Oral pain [Not Recovered/Not Resolved]
  - Genital rash [Unknown]
  - Rash [Unknown]
  - Stomatitis [Unknown]
  - Arthralgia [Unknown]
  - Abdominal discomfort [Unknown]
  - Walking disability [Unknown]
  - Dysstasia [Unknown]
  - Sitting disability [Unknown]

NARRATIVE: CASE EVENT DATE: 20220101
